FAERS Safety Report 10432660 (Version 1)
Quarter: 2014Q3

REPORT INFORMATION
  Report Type: Spontaneous
  Country: US (occurrence: None)
  Receive Date: 20140904
  Receipt Date: 20140904
  Transmission Date: 20150326
  Serious: No
  Sender: FDA-Public Use
  Company Number: None

PATIENT
  Sex: Male

DRUGS (1)
  1. MAG G [Suspect]
     Active Substance: MAGNESIUM GLUCONATE
     Indication: VITAMIN SUPPLEMENTATION
     Dosage: 2 TABLETS, Q, ORAL
     Route: 048
     Dates: start: 201408

REACTIONS (2)
  - Urticaria [None]
  - Flatulence [None]

NARRATIVE: CASE EVENT DATE: 20140815
